FAERS Safety Report 15404460 (Version 7)
Quarter: 2019Q4

REPORT INFORMATION
  Report Type: Spontaneous
  Country: ZA (occurrence: ZA)
  Receive Date: 20180919
  Receipt Date: 20191001
  Transmission Date: 20200122
  Serious: Yes (Disabling, Other)
  Sender: FDA-Public Use
  Company Number: ZA-SHIRE-ZA201835884

PATIENT

DRUGS (1)
  1. IDURSULFASE [Suspect]
     Active Substance: IDURSULFASE
     Indication: MUCOPOLYSACCHARIDOSIS II
     Dosage: 1X/WEEK, THREE FULL VIALS (13.75 MG)
     Route: 041

REACTIONS (9)
  - Loss of personal independence in daily activities [Unknown]
  - Aphasia [Unknown]
  - Product use issue [Unknown]
  - Epilepsy [Unknown]
  - Seizure [Unknown]
  - Deafness [Unknown]
  - Joint stiffness [Unknown]
  - Hydrocephalus [Unknown]
  - Hypokinesia [Unknown]

NARRATIVE: CASE EVENT DATE: 2017
